FAERS Safety Report 13073998 (Version 1)
Quarter: 2016Q4

REPORT INFORMATION
  Report Type: Spontaneous
  Country: DE (occurrence: DE)
  Receive Date: 20161229
  Receipt Date: 20161229
  Transmission Date: 20170207
  Serious: Yes (Other)
  Sender: FDA-Public Use
  Company Number: ALCN2016DE009443

PATIENT
  Age: 83 Year
  Sex: Female

DRUGS (1)
  1. VITALUX PLUS [Suspect]
     Active Substance: VITAMINS
     Indication: PRODUCT USED FOR UNKNOWN INDICATION
     Dosage: UNK
     Route: 048

REACTIONS (3)
  - Dry age-related macular degeneration [Unknown]
  - Cataract [Unknown]
  - Neovascular age-related macular degeneration [Unknown]

NARRATIVE: CASE EVENT DATE: 201611
